FAERS Safety Report 6271162-9 (Version None)
Quarter: 2009Q3

REPORT INFORMATION
  Report Type: 
  Country: None (occurrence: None)
  Receive Date: 20090717
  Receipt Date: 20070921
  Transmission Date: 20100115
  Serious: Yes (Other)
  Sender: FDA-Public Use
  Company Number: US-ASTRAZENECA-2006UW23751

PATIENT
  Age: 19452 Day
  Sex: Female
  Weight: 78.5 kg

DRUGS (18)
  1. SEROQUEL [Suspect]
     Indication: MIGRAINE
     Route: 048
     Dates: start: 20020101
  2. SEROQUEL [Suspect]
     Indication: HEADACHE
     Route: 048
     Dates: start: 20020101
  3. SEROQUEL [Suspect]
     Dosage: STRENGTH- 25 MG, 100 MG.  DOSE- 75-300 MG
     Route: 048
     Dates: start: 20040603
  4. SEROQUEL [Suspect]
     Dosage: STRENGTH- 25 MG, 100 MG.  DOSE- 75-300 MG
     Route: 048
     Dates: start: 20040603
  5. ZYPREXA [Concomitant]
  6. ATENOLOL [Concomitant]
     Route: 048
  7. LIPITOR [Concomitant]
     Dosage: STRENGTH- 20 MG, 40 MG. DOSE- 20 MG TO 40 MG DAILY
     Route: 048
  8. NEXIUM [Concomitant]
  9. TRAZODONE [Concomitant]
     Indication: INSOMNIA
     Dosage: TARE 1 TABLET AT BEDTIME AS NEEDED
  10. BUPROPION HCL [Concomitant]
  11. ENALAPRIL MALEATE [Concomitant]
  12. NITROGLYCERIN [Concomitant]
     Indication: CHEST PAIN
     Dosage: PLACE 1 TAB UNDER TONGUE EVERY 5 MINUTES AS NEEDED
     Route: 048
  13. DEPAKOTE ER [Concomitant]
     Route: 048
  14. TIZANIDINE HCL [Concomitant]
     Dosage: DOSE- TAKE 1/2 TO 2 TABLETS BY MOUTH EVERY 8 HOURS AS NEEDED
  15. PROMETHAZINE [Concomitant]
     Indication: NAUSEA
     Dosage: STRENGTH 25 MG. DOSE- TAKE 1 TABLET EVERY 4 HOURS AS NEEDED
     Route: 048
  16. ALLEGRA [Concomitant]
     Route: 048
  17. AMOX/CLAVULANATE [Concomitant]
     Dosage: STRENGTH- 875/125. DOSE- TAKE 1 TABLET TWICE DAILY
  18. NEURONTIN [Concomitant]
     Dosage: TAKE 2 CAPSULES (600 MG) BY MOUTH EACH MORNING AND TAKE 4 CAPSULES (1200 MG) EACH EVENING.
     Route: 048

REACTIONS (5)
  - DIABETES MELLITUS [None]
  - DIABETIC NEPHROPATHY [None]
  - DIABETIC NEUROPATHY [None]
  - DIABETIC RETINOPATHY [None]
  - PANCREATITIS [None]
